FAERS Safety Report 9278846 (Version 1)
Quarter: 2013Q2

REPORT INFORMATION
  Report Type: Spontaneous
  Country: US (occurrence: None)
  Receive Date: 20130506
  Receipt Date: 20130506
  Transmission Date: 20140414
  Serious: Yes (Hospitalization)
  Sender: FDA-Public Use
  Company Number: None

PATIENT
  Age: 63 Year
  Sex: Male
  Weight: 76.4 kg

DRUGS (2)
  1. SULFAMETHOXAZOLE/TRIMETHOPRIM [Suspect]
     Indication: CELLULITIS
     Dosage: 1 TAB
     Route: 048
     Dates: start: 20130423, end: 20130427
  2. DICLOFENAC [Suspect]
     Indication: PAIN
     Route: 048
     Dates: start: 20130410, end: 20130427

REACTIONS (1)
  - Renal failure acute [None]
